FAERS Safety Report 9387898 (Version 8)
Quarter: 2014Q2

REPORT INFORMATION
  Report Type: Spontaneous
  Country: US (occurrence: US)
  Receive Date: 20130708
  Receipt Date: 20140424
  Transmission Date: 20141212
  Serious: Yes (Hospitalization, Disabling, Other)
  Sender: FDA-Public Use
  Company Number: US-009507513-1307USA001896

PATIENT
  Sex: Female

DRUGS (7)
  1. FOSAMAX [Suspect]
     Indication: OSTEOPOROSIS
     Dosage: 70 MG, QW
     Route: 048
     Dates: start: 2005, end: 200912
  2. ALENDRONATE SODIUM [Suspect]
     Indication: OSTEOPOROSIS
     Dosage: 70 MG, QW
     Route: 048
     Dates: start: 20091229, end: 20110608
  3. CALCIUM (UNSPECIFIED) (+) VITAMIN D (UNSPECIFIED) [Concomitant]
     Dosage: QD
     Route: 048
     Dates: start: 200007
  4. CYANOCOBALAMIN [Concomitant]
     Dosage: QD
     Dates: start: 200007
  5. HORMONES (UNSPECIFIED) [Concomitant]
     Dosage: UNK
     Dates: start: 200809, end: 201111
  6. AVAPRO [Concomitant]
     Indication: DIABETES MELLITUS
     Dosage: UNK
     Dates: start: 200601, end: 2007
  7. PREMPRO [Concomitant]

REACTIONS (27)
  - Femur fracture [Recovered/Resolved]
  - Intramedullary rod insertion [Unknown]
  - Tibia fracture [Recovered/Resolved]
  - Internal fixation of fracture [Unknown]
  - Femur fracture [Not Recovered/Not Resolved]
  - Femoral neck fracture [Unknown]
  - Low turnover osteopathy [Not Recovered/Not Resolved]
  - Hypertension [Unknown]
  - Blood cholesterol increased [Unknown]
  - Cardiac disorder [Unknown]
  - Vascular calcification [Unknown]
  - Cardiac disorder [Unknown]
  - Epistaxis [Unknown]
  - Adverse event [Unknown]
  - Atelectasis [Unknown]
  - Peritoneal cyst [Unknown]
  - Obesity [Unknown]
  - Incision site cellulitis [Unknown]
  - Fracture nonunion [Unknown]
  - Meniscus injury [Unknown]
  - Fibula fracture [Recovered/Resolved]
  - Osteoarthritis [Unknown]
  - Osteoarthritis [Unknown]
  - Osteoporosis [Unknown]
  - Osteoarthritis [Unknown]
  - Constipation [Unknown]
  - Arthralgia [Unknown]
